FAERS Safety Report 8835250 (Version 1)
Quarter: 2012Q4

REPORT INFORMATION
  Report Type: 
  Country: ES (occurrence: ES)
  Receive Date: 20121011
  Receipt Date: 20121011
  Transmission Date: 20130627
  Serious: Yes (Other)
  Sender: FDA-Public Use
  Company Number: ES-AMGEN-ESPSP2012063649

PATIENT
  Age: 58 Year
  Sex: Female

DRUGS (1)
  1. VECTIBIX [Suspect]
     Indication: COLORECTAL CANCER STAGE IV
     Dosage: 6 mg/kg, q2wk
     Route: 042

REACTIONS (5)
  - Corneal perforation [Recovered/Resolved]
  - Corneal disorder [Recovered/Resolved]
  - Blindness [Recovered/Resolved]
  - Eye pain [Recovered/Resolved]
  - Conjunctival hyperaemia [Recovered/Resolved]
